FAERS Safety Report 16092214 (Version 2)
Quarter: 2019Q1

REPORT INFORMATION
  Report Type: Report from Study
  Country: DE (occurrence: DE)
  Receive Date: 20190319
  Receipt Date: 20190326
  Transmission Date: 20190418
  Serious: Yes (Other)
  Sender: FDA-Public Use
  Company Number: DE-SHIRE-DE201908209

PATIENT

DRUGS (1)
  1. HUMAN NORMAL IMMUNOGLOBULIN [Suspect]
     Active Substance: HUMAN IMMUNOGLOBULIN G
     Indication: PRIMARY IMMUNODEFICIENCY SYNDROME
     Dosage: 4 GRAM, 2X A WEEK (8 GRAM PER WEEK IN TWO DIVIDED DOSE OF 4 GRAM)
     Route: 058

REACTIONS (2)
  - Abdominal pain lower [Recovered/Resolved]
  - Diarrhoea [Recovered/Resolved]
